FAERS Safety Report 13656864 (Version 13)
Quarter: 2018Q3

REPORT INFORMATION
  Report Type: Report from Study
  Country: US (occurrence: US)
  Receive Date: 20170615
  Receipt Date: 20180726
  Transmission Date: 20181010
  Serious: Yes (Hospitalization, Other)
  Sender: FDA-Public Use
  Company Number: US-ACTELION-A-NJ2017-152564

PATIENT
  Age: 21 Year
  Sex: Female
  Weight: 38.95 kg

DRUGS (4)
  1. VELETRI [Suspect]
     Active Substance: EPOPROSTENOL
     Indication: PULMONARY ARTERIAL HYPERTENSION
     Dosage: 82 NG/KG, PER MIN
     Route: 042
     Dates: start: 200710, end: 20180614
  2. ADCIRCA [Concomitant]
     Active Substance: TADALAFIL
  3. LETAIRIS [Concomitant]
     Active Substance: AMBRISENTAN
  4. VELETRI [Suspect]
     Active Substance: EPOPROSTENOL
     Dosage: 64 NG/KG, PER MIN
     Route: 042

REACTIONS (26)
  - Condition aggravated [Unknown]
  - Pyrexia [Unknown]
  - Chest discomfort [Unknown]
  - Pallor [Unknown]
  - Flushing [Unknown]
  - Pain in extremity [Unknown]
  - Rash erythematous [Unknown]
  - Pulmonary arterial hypertension [Unknown]
  - Dizziness [Unknown]
  - Tachycardia [Unknown]
  - Device breakage [Unknown]
  - Nausea [Unknown]
  - Lung transplant [Recovered/Resolved]
  - Dyspnoea [Unknown]
  - Malaise [Unknown]
  - Weight decreased [Unknown]
  - Headache [Unknown]
  - Diarrhoea [Unknown]
  - Dyspnoea exertional [Not Recovered/Not Resolved]
  - Pulmonary oedema [Unknown]
  - Catheter placement [Unknown]
  - Pain in jaw [Unknown]
  - Therapy non-responder [Unknown]
  - Cardiac failure [Recovering/Resolving]
  - Fatigue [Unknown]
  - Emotional disorder [Unknown]
